FAERS Safety Report 16365828 (Version 2)
Quarter: 2019Q2

REPORT INFORMATION
  Report Type: Spontaneous
  Country: IT (occurrence: IT)
  Receive Date: 20190529
  Receipt Date: 20190620
  Transmission Date: 20190711
  Serious: Yes (Death, Life-Threatening, Hospitalization)
  Sender: FDA-Public Use
  Company Number: IT-009507513-1905ITA012107

PATIENT
  Age: 43 Year
  Sex: Male
  Weight: 70 kg

DRUGS (2)
  1. KEYTRUDA [Suspect]
     Active Substance: PEMBROLIZUMAB
     Indication: MALIGNANT NEOPLASM OF THYMUS
     Dosage: 200 MILLIGRAM, Q3W
     Route: 042
     Dates: start: 20190327, end: 20190418
  2. CONGESCOR [Concomitant]
     Active Substance: BISOPROLOL
     Dosage: 1.25MG, TWICE
     Route: 048

REACTIONS (3)
  - Off label use [Fatal]
  - T-lymphocyte count increased [Fatal]
  - Liver disorder [Fatal]

NARRATIVE: CASE EVENT DATE: 20190327
